FAERS Safety Report 9682174 (Version 1)
Quarter: 2013Q4

REPORT INFORMATION
  Report Type: Spontaneous
  Country: US (occurrence: US)
  Receive Date: 20131111
  Receipt Date: 20131111
  Transmission Date: 20140711
  Serious: No
  Sender: FDA-Public Use
  Company Number: US-009507513-1310USA014544

PATIENT
  Age: 62 Year
  Sex: Female

DRUGS (1)
  1. VICTRELIS [Suspect]
     Dosage: TAKE 4 CAPSULES (800MG) BY MOUTH THREE TIMES A DAY EVERY 7-9 HOURS WITH FOOD
     Route: 048
     Dates: start: 20131001

REACTIONS (3)
  - Dizziness postural [Unknown]
  - Rash [Unknown]
  - Fatigue [Unknown]
